FAERS Safety Report 12922562 (Version 1)
Quarter: 2016Q4

REPORT INFORMATION
  Report Type: Spontaneous
  Country: US (occurrence: US)
  Receive Date: 20161108
  Receipt Date: 20161108
  Transmission Date: 20170207
  Serious: Yes (Death, Hospitalization)
  Sender: FDA-Public Use
  Company Number: None

PATIENT
  Age: 2 Year
  Sex: Female
  Weight: 8.7 kg

DRUGS (5)
  1. DEXAMETHASONE. [Suspect]
     Active Substance: DEXAMETHASONE
     Dates: end: 20161030
  2. MITOXANTRONE HYDROCHLORIDE. [Suspect]
     Active Substance: MITOXANTRONE HYDROCHLORIDE
     Dates: end: 20161013
  3. ONCASPAR [Suspect]
     Active Substance: PEGASPARGASE
     Dates: end: 20161028
  4. VINCRISTINE SULFATE. [Suspect]
     Active Substance: VINCRISTINE SULFATE
     Dates: end: 20161026
  5. METHOTREXATE. [Suspect]
     Active Substance: METHOTREXATE
     Dates: end: 20161019

REACTIONS (7)
  - Pseudomonas test positive [None]
  - Neutropenia [None]
  - Hypotension [None]
  - Stenotrophomonas test positive [None]
  - Staphylococcus test positive [None]
  - Infection [None]
  - Pulmonary haemorrhage [None]

NARRATIVE: CASE EVENT DATE: 20161025
